FAERS Safety Report 6215515-3 (Version None)
Quarter: 2009Q2

REPORT INFORMATION
  Report Type: 
  Country: None (occurrence: None)
  Receive Date: 20090603
  Receipt Date: 20090521
  Transmission Date: 20091009
  Serious: Yes (Other)
  Sender: FDA-Public Use
  Company Number: MC200900198

PATIENT

DRUGS (1)
  1. ANGIOMAX [Suspect]
     Indication: ANGIOPLASTY
     Dates: start: 20090521

REACTIONS (2)
  - PROCEDURAL COMPLICATION [None]
  - VESSEL PERFORATION [None]
